FAERS Safety Report 6557045-5 (Version None)
Quarter: 2010Q1

REPORT INFORMATION
  Report Type: 
  Country: None (occurrence: None)
  Receive Date: 20100128
  Receipt Date: 20100122
  Transmission Date: 20100710
  Serious: Yes (Hospitalization, Disabling, Other)
  Sender: FDA-Public Use
  Company Number: US-MERCK-0906USA00694

PATIENT
  Age: 63 Year
  Sex: Female
  Weight: 73 kg

DRUGS (2)
  1. FOSAMAX [Suspect]
     Indication: OSTEOPOROSIS
     Route: 048
     Dates: start: 20050317, end: 20080201
  2. FOSAMAX [Suspect]
     Route: 048
     Dates: start: 20030101

REACTIONS (65)
  - ABDOMINAL PAIN [None]
  - ABNORMAL DREAMS [None]
  - ALVEOLAR OSTEITIS [None]
  - ANGINA PECTORIS [None]
  - ANXIETY DISORDER [None]
  - BACK DISORDER [None]
  - BALANCE DISORDER [None]
  - BONE DISORDER [None]
  - CARDIAC DISORDER [None]
  - CHANGE OF BOWEL HABIT [None]
  - CHEST PAIN [None]
  - COLON CANCER [None]
  - COLONIC POLYP [None]
  - CONSTIPATION [None]
  - CORONARY ARTERY DISEASE [None]
  - COUGH [None]
  - DENTAL CARIES [None]
  - DIARRHOEA [None]
  - DIVERTICULUM [None]
  - DRUG HYPERSENSITIVITY [None]
  - DYSPHAGIA [None]
  - DYSPNOEA [None]
  - DYSPNOEA EXERTIONAL [None]
  - DYSPNOEA PAROXYSMAL NOCTURNAL [None]
  - DYSTHYMIC DISORDER [None]
  - EDENTULOUS [None]
  - EXOSTOSIS [None]
  - FAECAL INCONTINENCE [None]
  - FRACTURE [None]
  - GINGIVAL BLEEDING [None]
  - GINGIVAL INFECTION [None]
  - HYPERTENSION [None]
  - HYPOAESTHESIA [None]
  - HYPOAESTHESIA ORAL [None]
  - IMPAIRED HEALING [None]
  - INCREASED TENDENCY TO BRUISE [None]
  - INTERVERTEBRAL DISC DEGENERATION [None]
  - JAW DISORDER [None]
  - MAJOR DEPRESSION [None]
  - MALNUTRITION [None]
  - MASTICATION DISORDER [None]
  - MEMORY IMPAIRMENT [None]
  - MUSCULAR WEAKNESS [None]
  - MYALGIA [None]
  - MYOCARDIAL INFARCTION [None]
  - NAUSEA [None]
  - NEURALGIA [None]
  - NICOTINE DEPENDENCE [None]
  - OEDEMA MOUTH [None]
  - ORAL INFECTION [None]
  - ORAL PAIN [None]
  - ORAL TORUS [None]
  - OSTEONECROSIS [None]
  - OVERDOSE [None]
  - PAIN [None]
  - PARAESTHESIA [None]
  - PRURITUS [None]
  - RASH [None]
  - STOMATITIS [None]
  - SWOLLEN TONGUE [None]
  - TEMPERATURE INTOLERANCE [None]
  - TOOTH ABSCESS [None]
  - TOOTH FRACTURE [None]
  - VISION BLURRED [None]
  - WEIGHT DECREASED [None]
